FAERS Safety Report 8248636-4 (Version None)
Quarter: 2012Q1

REPORT INFORMATION
  Report Type: 
  Country: None (occurrence: None)
  Receive Date: 20120331
  Receipt Date: 20120316
  Transmission Date: 20120608
  Serious: Yes (Other)
  Sender: FDA-Public Use
  Company Number: BR-AMGEN-BRASP2012003994

PATIENT
  Age: 57 Year
  Sex: Female
  Weight: 70 kg

DRUGS (8)
  1. PREDNISONE TAB [Concomitant]
     Indication: PAIN
     Dosage: 10 MG, 1X/DAY
     Dates: start: 20100101
  2. DIAMICRON [Concomitant]
     Indication: DIABETES MELLITUS
     Dosage: THREE TABLETS DAILY
  3. METFORMIN HCL [Concomitant]
     Indication: DIABETES MELLITUS
     Dosage: 800 MG, 2X/DAY
  4. SIMVASTATIN [Concomitant]
     Dosage: 20 MG, 2X/DAY
  5. ENBREL [Suspect]
     Indication: RHEUMATOID ARTHRITIS
     Dosage: 50 MG, 1X/WEEK
     Route: 058
     Dates: start: 20120117
  6. ENBREL [Suspect]
     Dosage: 50 MG, 1X/WEEK
     Route: 058
     Dates: start: 20111201
  7. CORUS [Concomitant]
     Indication: HYPERTENSION
     Dosage: ONE AT NIGHT
     Dates: start: 20100101
  8. DIOSMIN [Concomitant]
     Dosage: UNK

REACTIONS (6)
  - PRURITUS GENERALISED [None]
  - PRURITUS GENITAL [None]
  - HYPERGLYCAEMIA [None]
  - VARICOPHLEBITIS [None]
  - ACNE [None]
  - INFLUENZA [None]
